FAERS Safety Report 8879107 (Version 1)
Quarter: 2012Q4

REPORT INFORMATION
  Report Type: Spontaneous
  Country: US (occurrence: None)
  Receive Date: 20121031
  Receipt Date: 20121031
  Transmission Date: 20130627
  Serious: No
  Sender: FDA-Public Use
  Company Number: None

PATIENT
  Age: 91 Year
  Sex: Male
  Weight: 78.8 kg

DRUGS (2)
  1. DOXEPIN [Suspect]
     Route: 048
     Dates: start: 20120917, end: 20120923
  2. MELATONIN [Suspect]
     Indication: INSOMNIA
     Route: 048
     Dates: start: 20120917, end: 20120923

REACTIONS (4)
  - Agitation [None]
  - Confusional state [None]
  - Hallucination [None]
  - Delirium [None]
